FAERS Safety Report 9476326 (Version 2)
Quarter: 2013Q3

REPORT INFORMATION
  Report Type: Spontaneous
  Country: US (occurrence: US)
  Receive Date: 20130826
  Receipt Date: 20130826
  Transmission Date: 20140515
  Serious: Yes (Other)
  Sender: FDA-Public Use
  Company Number: US-LUNDBECK-DKLU1092559

PATIENT
  Age: 57 Year
  Sex: Female

DRUGS (8)
  1. SABRIL (TABLET) [Suspect]
     Indication: EPILEPSY
     Dates: start: 20100806
  2. SABRIL (TABLET) [Suspect]
     Indication: COMPLEX PARTIAL SEIZURES
  3. SABRIL (TABLET) [Suspect]
  4. SABRIL (TABLET) [Suspect]
     Route: 048
  5. LAMOTRIGINE [Concomitant]
     Indication: PRODUCT USED FOR UNKNOWN INDICATION
  6. TOPIRAMATE [Concomitant]
     Indication: PRODUCT USED FOR UNKNOWN INDICATION
  7. NEVANAC [Concomitant]
     Indication: PRODUCT USED FOR UNKNOWN INDICATION
     Route: 050
  8. EYE DROPS (PF) [Concomitant]
     Indication: PRODUCT USED FOR UNKNOWN INDICATION
     Route: 050

REACTIONS (5)
  - Retinal oedema [Unknown]
  - Visual impairment [Unknown]
  - Cataract [Unknown]
  - Eye inflammation [Unknown]
  - Nystagmus [Unknown]
